FAERS Safety Report 8790739 (Version 1)
Quarter: 2012Q4

REPORT INFORMATION
  Report Type: Spontaneous
  Country: US (occurrence: None)
  Receive Date: 20120913
  Receipt Date: 20120913
  Transmission Date: 20130627
  Serious: Yes (Life-Threatening, Hospitalization)
  Sender: FDA-Public Use
  Company Number: None

PATIENT
  Age: 46 Year
  Sex: Male
  Weight: 151 kg

DRUGS (2)
  1. CEFTAROLINE [Suspect]
     Indication: INFECTION MRSA
     Route: 042
     Dates: start: 20120616, end: 20120729
  2. CEFTAROLINE [Suspect]
     Indication: SPINAL DISORDER
     Route: 042
     Dates: start: 20120616, end: 20120729

REACTIONS (1)
  - Eosinophilic pneumonia [None]
